FAERS Safety Report 5373308-3 (Version None)
Quarter: 2007Q2

REPORT INFORMATION
  Report Type: 
  Country: None (occurrence: None)
  Receive Date: 20070626
  Receipt Date: 20070626
  Transmission Date: 20071010
  Serious: Yes (Life-Threatening, Hospitalization, Other)
  Sender: FDA-Public Use
  Company Number: None

PATIENT
  Age: 32 Year
  Sex: Male
  Weight: 158.759 kg

DRUGS (2)
  1. PERCOCET-5 [Suspect]
     Indication: BACK DISORDER
     Dosage: 1-2 TABS EVERY 4 HOURS PO
     Route: 048
  2. OXYCONTIN [Suspect]
     Indication: BACK DISORDER
     Dosage: 1 TAB TWICE PER DAY PO
     Route: 048

REACTIONS (2)
  - DRUG DEPENDENCE [None]
  - LEGAL PROBLEM [None]
